FAERS Safety Report 4931364-8 (Version None)
Quarter: 2006Q1

REPORT INFORMATION
  Report Type: 
  Country: None (occurrence: None)
  Receive Date: 20060228
  Receipt Date: 20060206
  Transmission Date: 20060701
  Serious: Yes (Hospitalization, Disabling)
  Sender: FDA-Public Use
  Company Number: USA0510111833

PATIENT
  Age: 65 Year
  Sex: Female
  Weight: 55.8 kg

DRUGS (2)
  1. EVISTA [Suspect]
     Dosage: 60 MG ORAL
     Route: 048
     Dates: start: 19980101
  2. ALTACE [Concomitant]

REACTIONS (3)
  - CEREBRAL ARTERY OCCLUSION [None]
  - CEREBRAL INFARCTION [None]
  - HYPERTENSION [None]
